FAERS Safety Report 8169134-2 (Version None)
Quarter: 2012Q1

REPORT INFORMATION
  Report Type: 
  Country: None (occurrence: None)
  Receive Date: 20120227
  Receipt Date: 20120221
  Transmission Date: 20120608
  Serious: Yes (Hospitalization)
  Sender: FDA-Public Use
  Company Number: JP-ROCHE-1040850

PATIENT
  Sex: Male
  Weight: 57 kg

DRUGS (12)
  1. OXALIPLATIN [Concomitant]
     Indication: RECTAL CANCER METASTATIC
     Route: 041
     Dates: start: 20101217, end: 20111125
  2. ONDANSETRON [Concomitant]
     Route: 041
     Dates: start: 20101217, end: 20111222
  3. OXYCONTIN [Concomitant]
     Indication: CANCER PAIN
     Route: 048
     Dates: start: 20111125, end: 20120101
  4. XELODA [Suspect]
     Indication: RECTAL CANCER METASTATIC
     Route: 048
     Dates: start: 20101217, end: 20120101
  5. VOLTAREN [Suspect]
     Indication: CANCER PAIN
     Route: 048
     Dates: start: 20110107, end: 20120101
  6. LOXONIN [Concomitant]
     Indication: CANCER PAIN
     Route: 048
     Dates: start: 20101119, end: 20110107
  7. GRANISETRON [Concomitant]
     Route: 041
     Dates: start: 20120120, end: 20120101
  8. AVASTIN [Suspect]
     Indication: RECTAL CANCER METASTATIC
     Route: 041
     Dates: start: 20101217, end: 20120101
  9. DECADRON [Concomitant]
     Route: 041
     Dates: start: 20101217, end: 20120101
  10. PYDOXAL [Concomitant]
     Indication: PROPHYLAXIS
     Route: 048
     Dates: start: 20110107, end: 20120101
  11. OXALIPLATIN [Concomitant]
     Route: 041
     Dates: start: 20111222, end: 20120101
  12. TEPRENONE [Concomitant]
     Route: 048
     Dates: start: 20111028

REACTIONS (7)
  - WEIGHT DECREASED [None]
  - PLATELET COUNT DECREASED [None]
  - VOMITING [None]
  - DECREASED APPETITE [None]
  - NEUROPATHY PERIPHERAL [None]
  - GASTRIC ULCER HAEMORRHAGE [None]
  - HYPERTENSION [None]
